FAERS Safety Report 7325174-4 (Version None)
Quarter: 2011Q1

REPORT INFORMATION
  Report Type: 
  Country: None (occurrence: None)
  Receive Date: 20110302
  Receipt Date: 20110215
  Transmission Date: 20110831
  Serious: Yes (Death, Other)
  Sender: FDA-Public Use
  Company Number: US-CELGENEUS-163-21880-11021980

PATIENT
  Sex: Male

DRUGS (9)
  1. SIMVASTATIN [Concomitant]
     Route: 065
  2. ALBUTEROL [Concomitant]
     Route: 065
  3. NORVASC [Concomitant]
     Route: 065
  4. REVLIMID [Suspect]
     Dosage: 5 MILLIGRAM
     Route: 048
     Dates: start: 20110112, end: 20110116
  5. TYLENOL W/ CODEINE NO. 3 [Concomitant]
     Route: 065
  6. TRAZODONE HCL [Concomitant]
     Route: 065
  7. DOXYCYCLINE [Concomitant]
     Route: 065
  8. LOVASTATIN [Concomitant]
     Route: 065
  9. ASA [Concomitant]
     Route: 065

REACTIONS (2)
  - SEPSIS [None]
  - PNEUMONIA [None]
